FAERS Safety Report 5017664-4 (Version None)
Quarter: 2006Q2

REPORT INFORMATION
  Report Type: 
  Country: None (occurrence: None)
  Receive Date: 20060605
  Receipt Date: 20060428
  Transmission Date: 20061013
  Serious: Yes (Other)
  Sender: FDA-Public Use
  Company Number: DE-ROCHE-449521

PATIENT
  Sex: Male

DRUGS (5)
  1. INVIRASE [Suspect]
     Indication: ANTI-INFECTIVE THERAPY
     Route: 048
  2. TRIZIVIR [Concomitant]
     Indication: ANTI-INFECTIVE THERAPY
  3. VIREAD [Concomitant]
     Indication: ANTI-INFECTIVE THERAPY
  4. ANTIRETROVIRALS [Suspect]
     Indication: DRUG USE FOR UNKNOWN INDICATION
     Dosage: DRUG NAME REPORTED AS HAART.
     Route: 065
  5. RITONAVIR [Concomitant]
     Indication: ANTI-INFECTIVE THERAPY

REACTIONS (3)
  - BLOOD CREATINE PHOSPHOKINASE INCREASED [None]
  - MYOCARDIAL INFARCTION [None]
  - RHABDOMYOLYSIS [None]
